FAERS Safety Report 5229344-0 (Version None)
Quarter: 2007Q1

REPORT INFORMATION
  Report Type: 
  Country: None (occurrence: None)
  Receive Date: 20061201
  Receipt Date: 20060118
  Transmission Date: 20070707
  Serious: Yes (Hospitalization)
  Sender: FDA-Public Use
  Company Number: 2006-137368-NL

PATIENT
  Age: 48 Year
  Sex: Female
  Weight: 83 kg

DRUGS (2)
  1. NUVARING [Suspect]
     Indication: CONTRACEPTION
     Dosage: VAGINAL
     Route: 067
     Dates: start: 20031001, end: 20040301
  2. LEXAPRO [Concomitant]

REACTIONS (1)
  - DEEP VEIN THROMBOSIS [None]
